FAERS Safety Report 19779780 (Version 1)
Quarter: 2021Q3

REPORT INFORMATION
  Report Type: Spontaneous
  Country: US (occurrence: US)
  Receive Date: 20210902
  Receipt Date: 20210902
  Transmission Date: 20211014
  Serious: Yes (Hospitalization, Other)
  Sender: FDA-Public Use
  Company Number: US-BIOHAVEN PHARMACEUTICALS-2021BHV00984

PATIENT
  Sex: Female

DRUGS (2)
  1. UNSPECIFIED BLOOD THINNERS [Concomitant]
     Active Substance: UNSPECIFIED INGREDIENT
  2. NURTEC ODT [Suspect]
     Active Substance: RIMEGEPANT SULFATE
     Indication: MIGRAINE
     Dosage: 75 MG, EVERY 48 HOURS
     Route: 060
     Dates: start: 202107

REACTIONS (3)
  - Cerebrovascular accident [Unknown]
  - Amnesia [Not Recovered/Not Resolved]
  - Constipation [Recovered/Resolved]

NARRATIVE: CASE EVENT DATE: 2021
